FAERS Safety Report 5138177-5 (Version None)
Quarter: 2006Q4

REPORT INFORMATION
  Report Type: 
  Country: None (occurrence: None)
  Receive Date: 20061025
  Receipt Date: 20061025
  Transmission Date: 20070319
  Serious: Yes (Life-Threatening, Hospitalization, Other)
  Sender: FDA-Public Use
  Company Number: None

PATIENT
  Age: 47 Year
  Sex: Female
  Weight: 63.5036 kg

DRUGS (3)
  1. ZICAM            UNKNOWN [Suspect]
     Indication: COUGH
     Dosage: 1 SQUIRT IN EACH NOSTRIL     4 TIMES PER DAY    NASAL
     Route: 045
     Dates: start: 20030908, end: 20030910
  2. ZICAM            UNKNOWN [Suspect]
     Indication: NASAL CONGESTION
     Dosage: 1 SQUIRT IN EACH NOSTRIL     4 TIMES PER DAY    NASAL
     Route: 045
     Dates: start: 20030908, end: 20030910
  3. ZICAM            UNKNOWN [Suspect]
     Indication: NASOPHARYNGITIS
     Dosage: 1 SQUIRT IN EACH NOSTRIL     4 TIMES PER DAY    NASAL
     Route: 045
     Dates: start: 20030908, end: 20030910

REACTIONS (5)
  - AGEUSIA [None]
  - AMNESIA [None]
  - ANOSMIA [None]
  - DEHYDRATION [None]
  - ENCEPHALITIS [None]
